FAERS Safety Report 19253979 (Version 2)
Quarter: 2021Q2

REPORT INFORMATION
  Report Type: Spontaneous
  Country: US (occurrence: US)
  Receive Date: 20210513
  Receipt Date: 20210517
  Transmission Date: 20210717
  Serious: No
  Sender: FDA-Public Use
  Company Number: NVSC2021US107176

PATIENT
  Sex: Female

DRUGS (2)
  1. MEKINIST [Suspect]
     Active Substance: TRAMETINIB DIMETHYL SULFOXIDE
     Indication: MALIGNANT MELANOMA
     Dosage: 2 MG, QD
     Route: 048
     Dates: start: 20210416
  2. TAFINLAR [Suspect]
     Active Substance: DABRAFENIB MESYLATE
     Indication: MALIGNANT MELANOMA
     Dosage: 150 MG, BID
     Route: 048
     Dates: start: 20210416

REACTIONS (9)
  - Somnolence [Unknown]
  - Rash macular [Unknown]
  - Pyrexia [Unknown]
  - Pain [Unknown]
  - Fatigue [Unknown]
  - Malaise [Unknown]
  - Feeling abnormal [Unknown]
  - Chills [Unknown]
  - Nausea [Unknown]
